FAERS Safety Report 19511539 (Version 1)
Quarter: 2021Q3

REPORT INFORMATION
  Report Type: Spontaneous
  Country: US (occurrence: US)
  Receive Date: 20210709
  Receipt Date: 20210709
  Transmission Date: 20211014
  Serious: No
  Sender: FDA-Public Use
  Company Number: US-TEVA-2021-US-1930906

PATIENT
  Age: 29 Year
  Sex: Female

DRUGS (1)
  1. LETROZOLE. [Suspect]
     Active Substance: LETROZOLE
     Indication: BLOOD FOLLICLE STIMULATING HORMONE ABNORMAL
     Route: 065
     Dates: start: 202101, end: 2021

REACTIONS (3)
  - Product use in unapproved indication [Unknown]
  - Endometriosis [Not Recovered/Not Resolved]
  - Allergy to metals [Not Recovered/Not Resolved]

NARRATIVE: CASE EVENT DATE: 2021
